FAERS Safety Report 8007380-9 (Version None)
Quarter: 2011Q4

REPORT INFORMATION
  Report Type: 
  Country: None (occurrence: None)
  Receive Date: 20111219
  Receipt Date: 20111108
  Transmission Date: 20120403
  Serious: No
  Sender: FDA-Public Use
  Company Number: US-145260

PATIENT
  Sex: Male

DRUGS (3)
  1. WINRHO SDF LIQUID [Suspect]
     Indication: THROMBOCYTOPENIA
     Dosage: INTRAVENOUS (NOT OTHERWISE SPECIFIED)
     Route: 042
     Dates: start: 20111021, end: 20111021
  2. WINRHO SDF LIQUID [Suspect]
     Indication: THROMBOCYTOPENIA
     Dosage: INTRAVENOUS (NOT OTHERWISE SPECIFIED)
     Route: 042
     Dates: start: 20111104, end: 20111104
  3. WINRHO SDF LIQUID [Suspect]
     Indication: THROMBOCYTOPENIA
     Dosage: INTRAVENOUS (NOT OTHERWISE SPECIFIED)
     Route: 042
     Dates: start: 20111120, end: 20111120

REACTIONS (2)
  - HAEMOGLOBIN DECREASED [None]
  - BLOOD URINE PRESENT [None]
